FAERS Safety Report 9254645 (Version 1)
Quarter: 2013Q1

REPORT INFORMATION
  Report Type: Spontaneous
  Country: US (occurrence: None)
  Receive Date: 20121203
  Receipt Date: 20121203
  Transmission Date: 20140127
  Serious: Yes (Disabling, Other)
  Sender: FDA-Public Use
  Company Number: 2012SP019311

PATIENT
  Age: 23 Year
  Sex: Female
  Weight: 56.7 kg

DRUGS (1)
  1. NUVARING [Suspect]
     Indication: CONTRACEPTION
     Dates: start: 200904, end: 201204

REACTIONS (5)
  - Pulmonary embolism [None]
  - Cerebrovascular accident [None]
  - Deep vein thrombosis [None]
  - Urticaria [None]
  - Headache [None]
